FAERS Safety Report 5859229-8 (Version None)
Quarter: 2008Q3

REPORT INFORMATION
  Report Type: 
  Country: None (occurrence: None)
  Receive Date: 20080825
  Receipt Date: 20080811
  Transmission Date: 20090109
  Serious: Yes (Hospitalization, Other)
  Sender: FDA-Public Use
  Company Number: ANTA0800126

PATIENT
  Age: 50 Year
  Sex: Male

DRUGS (4)
  1. FENOFIBRATE [Suspect]
     Indication: HYPERTRIGLYCERIDAEMIA
     Dosage: 250 MG, 400MG, QD UNK
     Dates: start: 20050101, end: 20050101
  2. FENOFIBRATE [Suspect]
     Indication: HYPERTRIGLYCERIDAEMIA
     Dosage: 250 MG, 400MG, QD UNK
     Dates: start: 20050101, end: 20050101
  3. BEXAROTENE (BEXAROTENE) [Suspect]
     Indication: MYCOSIS FUNGOIDES
     Dosage: 525 MG QD UNK
     Dates: start: 20050101
  4. VORINOSTAT (VORINOSTAT) [Suspect]
     Indication: MYCOSIS FUNGOIDES
     Dosage: 200 MG QD
     Dates: start: 20050101

REACTIONS (9)
  - BLOOD TRIGLYCERIDES INCREASED [None]
  - CHILLS [None]
  - FATIGUE [None]
  - GRANULOMA [None]
  - LYMPHOMA [None]
  - PYREXIA [None]
  - SUPERINFECTION BACTERIAL [None]
  - TUMOUR NECROSIS [None]
  - VASCULAR OCCLUSION [None]
